APPROVED DRUG PRODUCT: RAVOCAINE AND NOVOCAIN W/ LEVOPHED
Active Ingredient: NOREPINEPHRINE BITARTRATE; PROCAINE HYDROCHLORIDE; PROPOXYCAINE HYDROCHLORIDE
Strength: EQ 0.033MG BASE/ML;2%;0.4%
Dosage Form/Route: INJECTABLE;INJECTION
Application: N008592 | Product #003
Applicant: EASTMAN KODAK CO
Approved: Approved Prior to Jan 1, 1982 | RLD: No | RS: No | Type: DISCN